FAERS Safety Report 4664129-5 (Version None)
Quarter: 2005Q2

REPORT INFORMATION
  Report Type: 
  Country: None (occurrence: None)
  Receive Date: 20050516
  Receipt Date: 20050516
  Transmission Date: 20051028
  Serious: Yes (Other)
  Sender: FDA-Public Use
  Company Number: None

PATIENT
  Age: 34 Year
  Sex: Female
  Weight: 48.0813 kg

DRUGS (1)
  1. AMBIEN [Suspect]
     Dosage: 10MG   AS NEEDED   ORAL
     Route: 048

REACTIONS (1)
  - AMNESIA [None]
